FAERS Safety Report 15496970 (Version 1)
Quarter: 2018Q4

REPORT INFORMATION
  Report Type: Report from Study
  Country: BR (occurrence: BR)
  Receive Date: 20181015
  Receipt Date: 20181015
  Transmission Date: 20190205
  Serious: Yes (Death)
  Sender: FDA-Public Use
  Company Number: BR-UCBSA-2018025188

PATIENT
  Age: 82 Year
  Sex: Male

DRUGS (1)
  1. LACOSAMIDE. [Suspect]
     Active Substance: LACOSAMIDE
     Indication: EPILEPSY
     Dosage: 200 MG, 2X/DAY (BID)
     Route: 048
     Dates: start: 20180528, end: 20180606

REACTIONS (3)
  - Off label use [Unknown]
  - Hepatic failure [Fatal]
  - Product dose omission [Unknown]

NARRATIVE: CASE EVENT DATE: 20180606
